FAERS Safety Report 15706717 (Version 3)
Quarter: 2019Q2

REPORT INFORMATION
  Report Type: Spontaneous
  Country: JP (occurrence: JP)
  Receive Date: 20181210
  Receipt Date: 20190416
  Transmission Date: 20190711
  Serious: Yes (Death)
  Sender: FDA-Public Use
  Company Number: JP-CELGENEUS-JPN-20181201542

PATIENT
  Age: 77 Year
  Sex: Female
  Weight: 51.3 kg

DRUGS (38)
  1. AZACITIDINE. [Suspect]
     Active Substance: AZACITIDINE
     Indication: ACUTE MYELOID LEUKAEMIA
     Dosage: 75 MILLIGRAM/SQ. METER
     Route: 041
     Dates: start: 20181019, end: 20181125
  2. PARACETAMOL [Concomitant]
     Active Substance: ACETAMINOPHEN
     Dosage: 400 MILLIGRAM
     Route: 048
     Dates: start: 20181117, end: 20181124
  3. PARACETAMOL [Concomitant]
     Active Substance: ACETAMINOPHEN
     Dosage: 1000 MILLIGRAM
     Route: 041
     Dates: start: 20181126, end: 20181202
  4. CILOSTAZOL. [Concomitant]
     Active Substance: CILOSTAZOL
     Indication: ANGIOPATHY
     Dosage: 200 MILLIGRAM
     Route: 048
     Dates: start: 2018, end: 20181201
  5. HYDROXYZINE HYDROCHLORIDE. [Concomitant]
     Active Substance: HYDROXYZINE HYDROCHLORIDE
     Dosage: 25 MILLIGRAM
     Route: 041
     Dates: start: 20181112, end: 20181112
  6. HYDROXYZINE HYDROCHLORIDE. [Concomitant]
     Active Substance: HYDROXYZINE HYDROCHLORIDE
     Dosage: 25 MILLIGRAM
     Route: 041
     Dates: start: 20181121, end: 20181121
  7. ANTITHROMBIN GAMMA [Concomitant]
     Dosage: 1800 IU (INTERNATIONAL UNIT)
     Route: 041
     Dates: start: 20181119, end: 20181119
  8. FLUCONAZOLE. [Concomitant]
     Active Substance: FLUCONAZOLE
     Indication: INFECTION PROPHYLAXIS
     Dosage: 200 MILLIGRAM
     Route: 048
     Dates: start: 20181019, end: 20181130
  9. PIPERACILLIN AND TAZOBACTAM [Concomitant]
     Active Substance: PIPERACILLIN SODIUM\TAZOBACTAM SODIUM
     Indication: FEBRILE NEUTROPENIA
     Dosage: 13.5 GRAM
     Route: 041
     Dates: start: 20181120, end: 20181129
  10. HYDROXYZINE HYDROCHLORIDE. [Concomitant]
     Active Substance: HYDROXYZINE HYDROCHLORIDE
     Dosage: 25 MILLIGRAM
     Route: 041
     Dates: start: 20181201, end: 20181201
  11. FEBUXOSTAT. [Concomitant]
     Active Substance: FEBUXOSTAT
     Indication: PROPHYLAXIS
     Dosage: 60 MILLIGRAM
     Route: 048
     Dates: start: 20181018, end: 20181024
  12. AMLODIPINE [Concomitant]
     Active Substance: AMLODIPINE BESYLATE
     Indication: HYPERTENSION
     Dosage: 2.5 MILLIGRAM
     Route: 048
     Dates: start: 2008
  13. HEPARIN SODIUM. [Concomitant]
     Active Substance: HEPARIN SODIUM
     Dosage: 2000 IU (INTERNATIONAL UNIT)
     Route: 041
     Dates: start: 20181119, end: 20181128
  14. MICAFUNGIN SODIUM [Concomitant]
     Active Substance: MICAFUNGIN SODIUM
     Indication: FEBRILE NEUTROPENIA
     Dosage: 150 MILLIGRAM
     Route: 041
     Dates: start: 20181129, end: 20181202
  15. HYDROXYZINE HYDROCHLORIDE. [Concomitant]
     Active Substance: HYDROXYZINE HYDROCHLORIDE
     Dosage: 25 MILLIGRAM
     Route: 041
     Dates: start: 20181119, end: 20181119
  16. PARACETAMOL [Concomitant]
     Active Substance: ACETAMINOPHEN
     Dosage: 500 MILLIGRAM
     Route: 041
     Dates: start: 20181104, end: 20181125
  17. MEROPENEM. [Concomitant]
     Active Substance: MEROPENEM
     Indication: FEBRILE NEUTROPENIA
     Dosage: 3 GRAM
     Route: 041
     Dates: start: 20181129
  18. NORMAL SALINE [Concomitant]
     Active Substance: SODIUM CHLORIDE
     Indication: PROPHYLAXIS
     Dosage: 1500 MILLILITER
     Route: 041
     Dates: start: 20181018, end: 20181022
  19. ANTITHROMBIN GAMMA [Concomitant]
     Dosage: 1800 IU (INTERNATIONAL UNIT)
     Route: 041
     Dates: start: 20181022, end: 20181022
  20. BFLUID [Concomitant]
     Active Substance: AMINO ACIDS\DEXTROSE\ELECTROLYTES NOS\VITAMINS
     Indication: NUTRITIONAL SUPPLEMENTATION
     Dosage: 1000 MILLILITER
     Route: 041
     Dates: start: 20181026, end: 20181116
  21. CEFEPIME [Concomitant]
     Active Substance: CEFEPIME HYDROCHLORIDE
     Indication: FEBRILE NEUTROPENIA
     Dosage: 4 GRAM
     Route: 041
     Dates: start: 20181106, end: 20181116
  22. HYDROXYZINE HYDROCHLORIDE. [Concomitant]
     Active Substance: HYDROXYZINE HYDROCHLORIDE
     Dosage: 25 MILLIGRAM
     Route: 041
     Dates: start: 20181109, end: 20181109
  23. HYDROXYZINE HYDROCHLORIDE. [Concomitant]
     Active Substance: HYDROXYZINE HYDROCHLORIDE
     Dosage: 25 MILLIGRAM
     Route: 041
     Dates: start: 20181124, end: 20181124
  24. VENETOCLAX. [Concomitant]
     Active Substance: VENETOCLAX
     Indication: ACUTE MYELOID LEUKAEMIA
     Route: 065
  25. ANTITHROMBIN GAMMA [Concomitant]
     Indication: PROPHYLAXIS
     Dosage: 1800 IU (INTERNATIONAL UNIT)
     Route: 041
     Dates: start: 20181020, end: 20181020
  26. CEFEPIME [Concomitant]
     Active Substance: CEFEPIME HYDROCHLORIDE
     Dosage: 4 GRAM
     Route: 041
     Dates: start: 20181118, end: 20181119
  27. HEPARIN SODIUM. [Concomitant]
     Active Substance: HEPARIN SODIUM
     Indication: PROPHYLAXIS
     Dosage: 1000 IU (INTERNATIONAL UNIT)
     Route: 041
     Dates: start: 20181113, end: 20181115
  28. HYDROXYZINE HYDROCHLORIDE. [Concomitant]
     Active Substance: HYDROXYZINE HYDROCHLORIDE
     Dosage: 25 MILLIGRAM
     Route: 041
     Dates: start: 20181023, end: 20181023
  29. NORMAL SALINE [Concomitant]
     Active Substance: SODIUM CHLORIDE
     Dosage: 500 MILLILITER
     Route: 041
     Dates: start: 20181023, end: 20181025
  30. PARACETAMOL [Concomitant]
     Active Substance: ACETAMINOPHEN
     Indication: PYREXIA
     Dosage: 500 MILLIGRAM
     Route: 041
     Dates: start: 20181020, end: 20181020
  31. ANTITHROMBIN GAMMA [Concomitant]
     Dosage: 1800 IU (INTERNATIONAL UNIT)
     Route: 041
     Dates: start: 20181026, end: 20181026
  32. CEFEPIME [Concomitant]
     Active Substance: CEFEPIME HYDROCHLORIDE
     Indication: PROPHYLAXIS
     Dosage: 4 GRAM
     Route: 041
     Dates: start: 20181020, end: 20181102
  33. ESOMEPRAZOLE MAGNESIUM. [Concomitant]
     Active Substance: ESOMEPRAZOLE MAGNESIUM
     Indication: GASTRITIS PROPHYLAXIS
     Dosage: 20 MILLIGRAM
     Route: 048
     Dates: start: 20181019, end: 20181201
  34. IMMUNOGLOBULIN HUMAN NORMAL [Concomitant]
     Active Substance: HUMAN IMMUNOGLOBULIN G
     Indication: FEBRILE NEUTROPENIA
     Dosage: 5 GRAM
     Route: 041
     Dates: start: 20181129, end: 20181201
  35. HYDROXYZINE HYDROCHLORIDE. [Concomitant]
     Active Substance: HYDROXYZINE HYDROCHLORIDE
     Indication: PROPHYLAXIS
     Dosage: 25 MILLIGRAM
     Route: 041
     Dates: start: 20181021, end: 20181021
  36. ANTITHROMBIN GAMMA [Concomitant]
     Dosage: 1800 IU (INTERNATIONAL UNIT)
     Route: 041
     Dates: start: 20181128, end: 20181128
  37. BFLUID [Concomitant]
     Active Substance: AMINO ACIDS\DEXTROSE\ELECTROLYTES NOS\VITAMINS
     Dosage: 1000 MILLILITER
     Route: 041
     Dates: start: 20181119, end: 20181202
  38. LEVOTHYROXINE. [Concomitant]
     Active Substance: LEVOTHYROXINE
     Indication: HYPOTHYROIDISM
     Route: 048
     Dates: start: 2017, end: 20181201

REACTIONS (1)
  - Pneumonia [Fatal]

NARRATIVE: CASE EVENT DATE: 20181203
